FAERS Safety Report 4912209-9 (Version None)
Quarter: 2006Q1

REPORT INFORMATION
  Report Type: 
  Country: None (occurrence: None)
  Receive Date: 20060215
  Receipt Date: 20051003
  Transmission Date: 20060701
  Serious: No
  Sender: FDA-Public Use
  Company Number: US-GLAXOSMITHKLINE-A0576731A

PATIENT
  Age: 29 Year
  Sex: Female

DRUGS (2)
  1. VALTREX [Suspect]
     Dosage: 1G VARIABLE DOSE
     Route: 048
     Dates: start: 20050930
  2. PAROXETINE HCL [Concomitant]

REACTIONS (3)
  - DRUG INEFFECTIVE [None]
  - PAIN [None]
  - RASH [None]
